FAERS Safety Report 8942263 (Version 1)
Quarter: 2012Q4

REPORT INFORMATION
  Report Type: Spontaneous
  Country: US (occurrence: None)
  Receive Date: 20121129
  Receipt Date: 20121129
  Transmission Date: 20130627
  Serious: Yes (Hospitalization)
  Sender: FDA-Public Use
  Company Number: None

PATIENT
  Age: 60 Year
  Sex: Male
  Weight: 109.1 kg

DRUGS (2)
  1. CIPROFLOXACIN [Suspect]
     Route: 048
     Dates: start: 20121027, end: 20121027
  2. PRAVASTATIN [Suspect]
     Route: 048
     Dates: start: 20121027, end: 20121027

REACTIONS (4)
  - Rash pruritic [None]
  - Rash [None]
  - Rash [None]
  - Hepatic enzyme increased [None]
